FAERS Safety Report 18710320 (Version 3)
Quarter: 2021Q1

REPORT INFORMATION
  Report Type: Spontaneous
  Country: DE (occurrence: DE)
  Receive Date: 20210107
  Receipt Date: 20210222
  Transmission Date: 20210419
  Serious: Yes (Hospitalization, Other)
  Sender: FDA-Public Use
  Company Number: DE-AUROBINDO-AUR-APL-2021-000287

PATIENT
  Sex: Female

DRUGS (3)
  1. LETROZOLE. [Suspect]
     Active Substance: LETROZOLE
     Indication: BREAST CANCER METASTATIC
     Dosage: 2.5 MILLIGRAM, ONCE A DAY (2.5 MG, QD)
     Route: 048
     Dates: start: 20201123
  2. KISQALI [Suspect]
     Active Substance: RIBOCICLIB
     Dosage: 200 MILLIGRAM, ONCE A DAY SCHEMA 21 DAYS INTAKE, 7 DAYS PAUSE)
     Route: 048
     Dates: start: 20210118
  3. KISQALI [Suspect]
     Active Substance: RIBOCICLIB
     Indication: BREAST CANCER METASTATIC
     Dosage: 600 MILLIGRAM, ONCE A DAY (600 MG, QD (SCHEMA 21 DAYS INTAKE, 7 DAYS PAUSE))
     Route: 048
     Dates: start: 20201123, end: 20201221

REACTIONS (3)
  - Dyspnoea [Recovering/Resolving]
  - Atrial fibrillation [Recovered/Resolved]
  - Dyspnoea exertional [Not Recovered/Not Resolved]

NARRATIVE: CASE EVENT DATE: 2020
